FAERS Safety Report 21683860 (Version 1)
Quarter: 2022Q4

REPORT INFORMATION
  Report Type: Spontaneous
  Country: US (occurrence: None)
  Receive Date: 20221203
  Receipt Date: 20221203
  Transmission Date: 20230113
  Serious: Yes (Disabling, Other)
  Sender: FDA-Public Use
  Company Number: None

PATIENT
  Sex: Female

DRUGS (1)
  1. HYDROXYCHLOROQUINE SULFATE [Suspect]
     Active Substance: HYDROXYCHLOROQUINE SULFATE
     Indication: Rheumatoid arthritis
     Dosage: OTHER QUANTITY : 1 TABLET(S);?FREQUENCY : DAILY;?
     Route: 048
     Dates: start: 20220223, end: 20220315

REACTIONS (7)
  - Gastrointestinal pain [None]
  - Gastrointestinal disorder [None]
  - Photophobia [None]
  - Photosensitivity reaction [None]
  - Sensory disturbance [None]
  - Skin hyperpigmentation [None]
  - Actinic keratosis [None]

NARRATIVE: CASE EVENT DATE: 20220301
